FAERS Safety Report 16439653 (Version 3)
Quarter: 2019Q3

REPORT INFORMATION
  Report Type: Report from Study
  Country: US (occurrence: US)
  Receive Date: 20190617
  Receipt Date: 20190801
  Transmission Date: 20191004
  Serious: No
  Sender: FDA-Public Use
  Company Number: PHEH2019US025376

PATIENT
  Sex: Female

DRUGS (1)
  1. ENTRESTO [Suspect]
     Active Substance: SACUBITRIL\VALSARTAN
     Indication: CARDIAC FAILURE CONGESTIVE
     Route: 048

REACTIONS (4)
  - Insomnia [Unknown]
  - Sleep apnoea syndrome [Unknown]
  - Dyspnoea [Unknown]
  - Fatigue [Unknown]
